FAERS Safety Report 21030509 (Version 1)
Quarter: 2022Q3

REPORT INFORMATION
  Report Type: Spontaneous
  Country: US (occurrence: None)
  Receive Date: 20220701
  Receipt Date: 20220701
  Transmission Date: 20221026
  Serious: No
  Sender: FDA-Public Use
  Company Number: US-ROCHE-2997372

PATIENT
  Age: 83 Year
  Sex: Female
  Weight: 74.910 kg

DRUGS (2)
  1. ACTEMRA [Suspect]
     Active Substance: TOCILIZUMAB
     Indication: Rheumatoid arthritis
     Route: 058
     Dates: start: 20211111
  2. ACTEMRA [Suspect]
     Active Substance: TOCILIZUMAB

REACTIONS (4)
  - Device malfunction [Unknown]
  - Drug delivery system malfunction [Unknown]
  - Device defective [Unknown]
  - Pain [Unknown]

NARRATIVE: CASE EVENT DATE: 20211223
